FAERS Safety Report 7824597-4 (Version None)
Quarter: 2011Q4

REPORT INFORMATION
  Report Type: 
  Country: None (occurrence: None)
  Receive Date: 20111019
  Receipt Date: 20111005
  Transmission Date: 20120403
  Serious: Yes (Hospitalization, Other)
  Sender: FDA-Public Use
  Company Number: US-ELI_LILLY_AND_COMPANY-US201105008691

PATIENT
  Sex: Female

DRUGS (16)
  1. ACETAMINOPHEN [Concomitant]
     Indication: MIGRAINE
     Dosage: 325 MG, QD
  2. CALCIUM CARBONATE [Concomitant]
     Dosage: 1500 MG, QD
  3. LEXAPRO [Concomitant]
     Dosage: 10 MG, QD
  4. OXYGEN [Concomitant]
     Dosage: 2 L, QD
  5. PRASUGREL HYDROCHLORIDE [Concomitant]
     Dosage: 10 MG, QD
  6. FORTEO [Suspect]
     Indication: OSTEOPOROSIS
     Dosage: 20 UG, QD
     Dates: start: 20110101
  7. ASPIRIN [Concomitant]
     Dosage: 81 MG, QD
  8. ATORVASTATIN [Concomitant]
     Dosage: 40 MG, QD
  9. PANTOPRAZOLE [Concomitant]
     Dosage: 40 MG, QD
  10. VITAMIN D [Concomitant]
  11. ADVAIR DISKUS 100/50 [Concomitant]
     Dosage: UNK, BID
  12. SPIRONOLACTONE [Concomitant]
     Dosage: 25 MG, QD
  13. CYANOCOBALAMIN [Concomitant]
  14. CARVEDILOL [Concomitant]
     Dosage: 3.125 MG, BID
  15. LOSARTAN POTASSIUM [Concomitant]
     Dosage: 50 MG, QD
  16. NITROGLYCERIN [Concomitant]
     Indication: CHEST PAIN
     Dosage: 0.4 ML, PRN

REACTIONS (4)
  - MYALGIA [None]
  - CONTUSION [None]
  - ARTHRALGIA [None]
  - MYOCARDIAL INFARCTION [None]
